FAERS Safety Report 4692930-0 (Version None)
Quarter: 2005Q2

REPORT INFORMATION
  Report Type: 
  Country: None (occurrence: None)
  Receive Date: 20050615
  Receipt Date: 20050527
  Transmission Date: 20051028
  Serious: Yes (Hospitalization)
  Sender: FDA-Public Use
  Company Number: US_0410107447

PATIENT
  Age: 47 Year
  Sex: Female
  Weight: 95 kg

DRUGS (13)
  1. ZYPREXA [Suspect]
     Dosage: UNK
     Route: 048
     Dates: start: 19960101, end: 20050101
  2. ZIPRASIDONE [Concomitant]
  3. DIVALPROEX SODIUM [Concomitant]
  4. BUPROPION [Concomitant]
  5. CITALOPRAM [Concomitant]
  6. MIRTAZAPINE [Concomitant]
  7. PAROXETINE HCL [Concomitant]
  8. SERTRALINE HCL [Concomitant]
  9. GLYBURIDE [Concomitant]
  10. GEODON [Concomitant]
  11. TRAZODONE [Concomitant]
  12. VISTARIL [Concomitant]
  13. ANAFRANIL [Concomitant]

REACTIONS (8)
  - ACCIDENT [None]
  - DIABETES MELLITUS [None]
  - FAECAL OCCULT BLOOD POSITIVE [None]
  - HAEMOPTYSIS [None]
  - HAEMORRHOIDS [None]
  - HYPERTENSION [None]
  - POLYTRAUMATISM [None]
  - THERMAL BURN [None]
